FAERS Safety Report 5024060-2 (Version None)
Quarter: 2006Q2

REPORT INFORMATION
  Report Type: 
  Country: None (occurrence: None)
  Receive Date: 20060612
  Receipt Date: 20060602
  Transmission Date: 20061013
  Serious: Yes (Hospitalization, Other)
  Sender: FDA-Public Use
  Company Number: DE-MERCK-0606DEU00022

PATIENT
  Age: 53 Year
  Sex: Male

DRUGS (9)
  1. VYTORIN [Suspect]
     Indication: HYPERLIPIDAEMIA
     Route: 048
  2. CYCLOSPORINE [Concomitant]
     Route: 065
  3. METHYLPREDNISOLONE [Concomitant]
     Route: 065
  4. PANTOPRAZOLE SODIUM [Concomitant]
     Route: 065
  5. ASPIRIN [Concomitant]
     Route: 065
  6. RAMIPRIL [Concomitant]
     Route: 065
  7. CALCIUM CARBONATE AND CHOLECALCIFEROL [Concomitant]
     Route: 048
  8. CARVEDILOL [Concomitant]
     Route: 065
  9. PHENPROCOUMON [Concomitant]
     Route: 065

REACTIONS (8)
  - ARTERIAL THROMBOSIS LIMB [None]
  - CORONARY ARTERY STENOSIS [None]
  - FALL [None]
  - HAEMORRHAGE [None]
  - HYPERKALAEMIA [None]
  - ISCHAEMIA [None]
  - RENAL FAILURE ACUTE [None]
  - RHABDOMYOLYSIS [None]
